FAERS Safety Report 6208062-6 (Version None)
Quarter: 2009Q2

REPORT INFORMATION
  Report Type: 
  Country: None (occurrence: None)
  Receive Date: 20090529
  Receipt Date: 20090428
  Transmission Date: 20091009
  Serious: No
  Sender: FDA-Public Use
  Company Number: US-BAYER-200919302NA

PATIENT

DRUGS (1)
  1. AVELOX [Suspect]
     Indication: SKIN INFECTION

REACTIONS (1)
  - HYPERSENSITIVITY [None]
